FAERS Safety Report 6377855-7 (Version None)
Quarter: 2009Q3

REPORT INFORMATION
  Report Type: 
  Country: None (occurrence: None)
  Receive Date: 20090925
  Receipt Date: 20090819
  Transmission Date: 20100115
  Serious: No
  Sender: FDA-Public Use
  Company Number: US-ABBOTT-09P-163-0593578-00

PATIENT
  Age: 52 Year
  Sex: Male
  Weight: 99.88 kg

DRUGS (11)
  1. TRICOR [Suspect]
     Indication: BLOOD CHOLESTEROL INCREASED
     Dates: start: 20060101
  2. TRICOR [Suspect]
     Indication: BLOOD TRIGLYCERIDES INCREASED
  3. TRICOR [Suspect]
     Indication: HIGH DENSITY LIPOPROTEIN DECREASED
  4. TRICOR [Suspect]
     Indication: LOW DENSITY LIPOPROTEIN INCREASED
  5. TRICOR [Suspect]
     Indication: BLOOD CHOLESTEROL INCREASED
     Dates: end: 20080101
  6. TRICOR [Suspect]
     Indication: BLOOD TRIGLYCERIDES INCREASED
  7. TRICOR [Suspect]
     Indication: HIGH DENSITY LIPOPROTEIN DECREASED
  8. TRICOR [Suspect]
     Indication: LOW DENSITY LIPOPROTEIN INCREASED
  9. ZOLOFT [Concomitant]
     Indication: DEPRESSION
  10. ASPIRIN [Concomitant]
     Indication: DRUG USE FOR UNKNOWN INDICATION
  11. MULTI-VITAMIN [Concomitant]
     Indication: VITAMIN SUPPLEMENTATION

REACTIONS (2)
  - DRUG INEFFECTIVE [None]
  - LABORATORY TEST ABNORMAL [None]
